FAERS Safety Report 10966809 (Version 2)
Quarter: 2015Q2

REPORT INFORMATION
  Report Type: Report from Study
  Country: JP (occurrence: JP)
  Receive Date: 20150330
  Receipt Date: 20150526
  Transmission Date: 20150821
  Serious: Yes (Death)
  Sender: FDA-Public Use
  Company Number: JP-SA-2015SA039384

PATIENT
  Age: 62 Year
  Sex: Male
  Weight: 73.9 kg

DRUGS (32)
  1. OXINORM [Concomitant]
     Active Substance: OXYCODONE HYDROCHLORIDE
  2. ACETAMINOPHEN. [Concomitant]
     Active Substance: ACETAMINOPHEN
  3. CARBAZOCHROME SODIUM SULFONATE [Concomitant]
     Active Substance: CARBAZOCHROME SODIUM SULFONATE
  4. TRANEXAMIC ACID. [Concomitant]
     Active Substance: TRANEXAMIC ACID
  5. DEXAMETHASONE SODIUM PHOSPHATE. [Concomitant]
     Active Substance: DEXAMETHASONE SODIUM PHOSPHATE
  6. RANITIDINE HYDROCHLORIDE. [Concomitant]
     Active Substance: RANITIDINE HYDROCHLORIDE
  7. CALONAL [Concomitant]
     Active Substance: ACETAMINOPHEN
  8. TRYPTANOL [Concomitant]
     Active Substance: AMITRIPTYLINE
  9. LOXOPROFEN [Concomitant]
     Active Substance: LOXOPROFEN
  10. ADONA [Concomitant]
     Active Substance: CARBAZOCHROME SODIUM SULFONATE
  11. ZANTAC [Concomitant]
     Active Substance: RANITIDINE HYDROCHLORIDE
     Indication: PREMEDICATION
     Route: 042
     Dates: start: 20150209, end: 20150209
  12. PREGABALIN. [Concomitant]
     Active Substance: PREGABALIN
  13. CHLORPHENIRAMINE MALEATE. [Concomitant]
     Active Substance: CHLORPHENIRAMINE MALEATE
  14. RABEPRAZOLE [Concomitant]
     Active Substance: RABEPRAZOLE
  15. OXYCONTIN [Concomitant]
     Active Substance: OXYCODONE HYDROCHLORIDE
  16. XTANDI [Concomitant]
     Active Substance: ENZALUTAMIDE
     Dates: start: 201005
  17. AMITRIPTYLINE HYDROCHLORIDE. [Concomitant]
     Active Substance: AMITRIPTYLINE HYDROCHLORIDE
  18. JEVTANA [Suspect]
     Active Substance: CABAZITAXEL
     Indication: PROSTATE CANCER
     Route: 042
     Dates: start: 20150209, end: 20150209
  19. LYRICA [Concomitant]
     Active Substance: PREGABALIN
  20. ESTRACYT [Concomitant]
     Active Substance: ESTRAMUSTINE PHOSPHATE SODIUM
     Dates: start: 201005
  21. PREDNISOLONE. [Concomitant]
     Active Substance: PREDNISOLONE
     Dates: start: 2014, end: 201501
  22. TRANSAMIN [Concomitant]
     Active Substance: TRANEXAMIC ACID
  23. DEXART [Concomitant]
     Active Substance: DEXAMETHASONE SODIUM PHOSPHATE
     Indication: PREMEDICATION
     Route: 042
     Dates: start: 20150209, end: 20150209
  24. ODYNE [Concomitant]
     Active Substance: FLUTAMIDE
     Dates: start: 201005
  25. OXYCODONE HYDROCHLORIDE. [Concomitant]
     Active Substance: OXYCODONE HYDROCHLORIDE
  26. ABIRATERONE ACETATE [Concomitant]
     Active Substance: ABIRATERONE ACETATE
     Dates: start: 2014, end: 201501
  27. JEVTANA [Suspect]
     Active Substance: CABAZITAXEL
     Indication: PROSTATE CANCER
     Route: 065
     Dates: start: 20150109, end: 20150109
  28. URIEF [Concomitant]
     Active Substance: SILODOSIN
  29. PREDONINE [Concomitant]
     Active Substance: PREDNISOLONE\PREDNISOLONE ACETATE\PREDNISOLONE SODIUM SUCCINATE
     Indication: PROPHYLAXIS
     Dates: start: 20141009, end: 20150103
  30. POLARAMINE [Concomitant]
     Active Substance: DEXCHLORPHENIRAMINE MALEATE
     Indication: PREMEDICATION
     Route: 042
     Dates: start: 20150209, end: 20150209
  31. CASODEX [Concomitant]
     Active Substance: BICALUTAMIDE
     Dates: start: 201005
  32. SILODOSIN [Concomitant]
     Active Substance: SILODOSIN

REACTIONS (4)
  - Hypoalbuminaemia [Fatal]
  - Vomiting [Unknown]
  - Condition aggravated [Fatal]
  - Febrile neutropenia [Fatal]

NARRATIVE: CASE EVENT DATE: 20150119
